FAERS Safety Report 4474692-5 (Version None)
Quarter: 2004Q4

REPORT INFORMATION
  Report Type: 
  Country: None (occurrence: None)
  Receive Date: 20041012
  Receipt Date: 20041004
  Transmission Date: 20050328
  Serious: Yes (Hospitalization)
  Sender: FDA-Public Use
  Company Number: STA-AE-04-MTX-467

PATIENT
  Age: 81 Year
  Sex: Female

DRUGS (5)
  1. RHEUMATREX [Suspect]
     Indication: ARTHRITIS
     Dosage: 4 MG 1X PER 1 WK, ORAL
     Route: 048
     Dates: start: 20040722, end: 20040921
  2. CAMA (ACETYLSALICYLIC ACID/ALUMINUM HYDROXIDE GEL, DRIED/MAGNESIUM HYD [Concomitant]
  3. CORINAEL (NIFEDIPINE) [Concomitant]
  4. VITAMEDIN (BENFOTIAMINE/CYANOCOBALAMIN/PYRIDOXINE HYDROCHLORIDE) [Concomitant]
  5. KENALOG [Concomitant]

REACTIONS (3)
  - BONE MARROW DEPRESSION [None]
  - LIP HAEMORRHAGE [None]
  - MELAENA [None]
